FAERS Safety Report 5198968-1 (Version None)
Quarter: 2006Q4

REPORT INFORMATION
  Report Type: 
  Country: None (occurrence: None)
  Receive Date: 20061016
  Receipt Date: 20060728
  Transmission Date: 20070319
  Serious: No
  Sender: FDA-Public Use
  Company Number: 2006SP002837

PATIENT
  Age: 57 Year
  Sex: Male
  Weight: 77.1115 kg

DRUGS (7)
  1. LUNESTA [Suspect]
     Indication: INSOMNIA
     Dosage: 3 MG; UNKNOWN; ORAL
     Route: 048
     Dates: start: 20060501
  2. LITHIUM CARBONATE [Concomitant]
  3. ZOLOFT [Concomitant]
  4. ABILIFY [Concomitant]
  5. LORAZEPAM [Concomitant]
  6. SEROQUEL [Concomitant]
  7. PROPRANOLOL [Concomitant]

REACTIONS (1)
  - MIDDLE INSOMNIA [None]
